FAERS Safety Report 14416876 (Version 1)
Quarter: 2018Q1

REPORT INFORMATION
  Report Type: Spontaneous
  Country: FR (occurrence: FR)
  Receive Date: 20180122
  Receipt Date: 20180122
  Transmission Date: 20180509
  Serious: Yes (Other)
  Sender: FDA-Public Use
  Company Number: FR-MERCK KGAA-2040488

PATIENT
  Age: 46 Year
  Sex: Female
  Weight: 49 kg

DRUGS (1)
  1. NOVOTHYROX [Suspect]
     Active Substance: LEVOTHYROXINE SODIUM
     Indication: AUTOIMMUNE THYROIDITIS
     Route: 048
     Dates: start: 20170401, end: 20170920

REACTIONS (9)
  - Myalgia [Unknown]
  - Fatigue [Unknown]
  - Arthralgia [Unknown]
  - Weight increased [Unknown]
  - Diffuse alopecia [Unknown]
  - Vertigo [Unknown]
  - Headache [Unknown]
  - Mood swings [Unknown]
  - Crying [Unknown]

NARRATIVE: CASE EVENT DATE: 20170408
